FAERS Safety Report 5874689-4 (Version None)
Quarter: 2008Q3

REPORT INFORMATION
  Report Type: 
  Country: None (occurrence: None)
  Receive Date: 20080909
  Receipt Date: 20080827
  Transmission Date: 20090109
  Serious: No
  Sender: FDA-Public Use
  Company Number: AU-JNJFOC-20080603764

PATIENT
  Sex: Male
  Weight: 3.37 kg

DRUGS (1)
  1. RISPERDAL [Suspect]
     Indication: DRUG EXPOSURE DURING PREGNANCY

REACTIONS (1)
  - DRUG WITHDRAWAL SYNDROME NEONATAL [None]
